FAERS Safety Report 5688829-3 (Version None)
Quarter: 2008Q1

REPORT INFORMATION
  Report Type: 
  Country: None (occurrence: None)
  Receive Date: 20080331
  Receipt Date: 20020620
  Transmission Date: 20080703
  Serious: Yes (Death)
  Sender: FDA-Public Use
  Company Number: DE-ROCHE-315532

PATIENT
  Age: 29 Year
  Sex: Female

DRUGS (2)
  1. DIAZEPAM [Suspect]
     Indication: DRUG USE FOR UNKNOWN INDICATION
     Dosage: SEVERAL PACKETS.
     Route: 065
  2. FLUNITRAZEPAM [Suspect]
     Indication: DRUG USE FOR UNKNOWN INDICATION
     Dosage: SEVERAL PACKETS.
     Route: 065

REACTIONS (4)
  - DEATH [None]
  - HEAD INJURY [None]
  - HYPOTHERMIA [None]
  - OVERDOSE [None]
